FAERS Safety Report 7546611-6 (Version None)
Quarter: 2011Q2

REPORT INFORMATION
  Report Type: 
  Country: None (occurrence: None)
  Receive Date: 20110614
  Receipt Date: 20110603
  Transmission Date: 20111010
  Serious: Yes (Death, Other)
  Sender: FDA-Public Use
  Company Number: US-BAXTER-2011BH016675

PATIENT
  Age: 77 Year
  Sex: Male

DRUGS (1)
  1. DIANEAL [Suspect]
     Indication: PERITONEAL DIALYSIS
     Route: 033

REACTIONS (4)
  - INFECTION [None]
  - PERITONEAL EFFLUENT ABNORMAL [None]
  - INTESTINAL PERFORATION [None]
  - MEDICAL DEVICE COMPLICATION [None]
